FAERS Safety Report 5564776-2 (Version None)
Quarter: 2007Q4

REPORT INFORMATION
  Report Type: 
  Country: None (occurrence: None)
  Receive Date: 20071212
  Receipt Date: 20071126
  Transmission Date: 20080405
  Serious: Yes (Death)
  Sender: FDA-Public Use
  Company Number: A-JP2007-18618

PATIENT
  Age: 76 Year
  Sex: Female
  Weight: 38 kg

DRUGS (13)
  1. TRACLEER [Suspect]
     Indication: PULMONARY HYPERTENSION
     Dosage: 62.5 MG, BID, ORAL
     Route: 048
     Dates: start: 20050909, end: 20050916
  2. OXYGEN (OXYGEN) [Concomitant]
  3. BERAPROST SODIUM (BERAPROST SODIUM) [Concomitant]
  4. PREDNISONE [Concomitant]
  5. LEVOTHYROXINE SODIUM [Concomitant]
  6. NILVADIPINE (NILVADIPINE) [Concomitant]
  7. ALENDRONATE SODIUM [Concomitant]
  8. LANSOPRAZOLE [Concomitant]
  9. MAGNESIUM OXIDE (MAGNESIUM OXIDE) [Concomitant]
  10. PILSICAINIDE HYDROCHLORIDE (PILSICAINIDE HYDROCHLORIDE) [Concomitant]
  11. DIGITOXIN (DIGITOXIN) [Concomitant]
  12. AZOSEMIDE (AZOSEMIDE) [Concomitant]
  13. FERROUS SODIUM CITRATE (FERROUS SODIUM CITRATE) [Concomitant]

REACTIONS (5)
  - CARCINOEMBRYONIC ANTIGEN INCREASED [None]
  - GASTRIC CANCER STAGE II [None]
  - GENERAL PHYSICAL HEALTH DETERIORATION [None]
  - MALIGNANT PLEURAL EFFUSION [None]
  - PERICARDIAL EFFUSION MALIGNANT [None]
